FAERS Safety Report 12492523 (Version 1)
Quarter: 2016Q2

REPORT INFORMATION
  Report Type: Spontaneous
  Country: US (occurrence: US)
  Receive Date: 20160623
  Receipt Date: 20160623
  Transmission Date: 20160815
  Serious: No
  Sender: FDA-Public Use
  Company Number: US-GLAXOSMITHKLINE-US2016081821

PATIENT
  Age: 76 Year
  Sex: Female

DRUGS (14)
  1. ASPIRIN. [Concomitant]
     Active Substance: ASPIRIN
  2. METOPROLOL. [Concomitant]
     Active Substance: METOPROLOL
  3. OXYCODONE [Concomitant]
     Active Substance: OXYCODONE
  4. VITAMIN D3 [Concomitant]
     Active Substance: CHOLECALCIFEROL
  5. ANORO ELLIPTA [Suspect]
     Active Substance: UMECLIDINIUM BROMIDE\VILANTEROL TRIFENATATE
     Indication: CHRONIC OBSTRUCTIVE PULMONARY DISEASE
     Dosage: 1 PUFF(S), QD
     Dates: start: 201605
  6. OMEPRAZOLE. [Concomitant]
     Active Substance: OMEPRAZOLE
  7. AMITRIPTYLINE [Concomitant]
     Active Substance: AMITRIPTYLINE
  8. FLAX SEED [Concomitant]
     Active Substance: FLAX SEED
  9. LISINOPRIL. [Concomitant]
     Active Substance: LISINOPRIL
  10. PREMARIN [Concomitant]
     Active Substance: ESTROGENS, CONJUGATED
  11. EZETROL [Concomitant]
     Active Substance: EZETIMIBE
  12. CHONDROITIN MSM (CHONDROITIN SULFATE + GLUCOSAMINE SULFATE + MSM) [Concomitant]
  13. COLACE [Concomitant]
     Active Substance: DOCUSATE SODIUM
  14. TESSALON (BENZONATATE) [Concomitant]

REACTIONS (5)
  - Bladder pain [Recovering/Resolving]
  - Muscular weakness [Unknown]
  - Muscle spasms [Unknown]
  - Dry mouth [Not Recovered/Not Resolved]
  - Pain [Not Recovered/Not Resolved]

NARRATIVE: CASE EVENT DATE: 201605
